FAERS Safety Report 21339410 (Version 3)
Quarter: 2023Q1

REPORT INFORMATION
  Report Type: Spontaneous
  Country: US (occurrence: US)
  Receive Date: 20220915
  Receipt Date: 20230130
  Transmission Date: 20230417
  Serious: No
  Sender: FDA-Public Use
  Company Number: US-SA-SAC20220908001099

PATIENT
  Age: 20 Year
  Sex: Male

DRUGS (1)
  1. DUPIXENT [Suspect]
     Active Substance: DUPILUMAB
     Dosage: 300MG, OTHER
     Route: 058
     Dates: start: 202208

REACTIONS (3)
  - Eczema [Unknown]
  - Rash pruritic [Unknown]
  - Dry eye [Unknown]

NARRATIVE: CASE EVENT DATE: 20220907
